FAERS Safety Report 18203116 (Version 1)
Quarter: 2020Q3

REPORT INFORMATION
  Report Type: Spontaneous
  Country: US (occurrence: US)
  Receive Date: 20200827
  Receipt Date: 20200827
  Transmission Date: 20201103
  Serious: No
  Sender: FDA-Public Use
  Company Number: US-MERZ PHARMACEUTICALS GMBH-20-02135

PATIENT
  Age: 66 Year
  Sex: Female
  Weight: 70.37 kg

DRUGS (1)
  1. ASCLERA [Suspect]
     Active Substance: POLIDOCANOL
     Indication: VARICOSE VEIN
     Dates: start: 20190404, end: 20190404

REACTIONS (1)
  - Drug effect less than expected [Not Recovered/Not Resolved]
